FAERS Safety Report 9501678 (Version 1)
Quarter: 2013Q3

REPORT INFORMATION
  Report Type: Report from Study
  Country: JP (occurrence: JP)
  Receive Date: 20130905
  Receipt Date: 20130905
  Transmission Date: 20140515
  Serious: Yes (Life-Threatening)
  Sender: FDA-Public Use
  Company Number: JP-EISAI INC-E2020-12830-SOL-JP

PATIENT
  Age: 84 Year
  Sex: Female

DRUGS (6)
  1. ARICEPT [Suspect]
     Indication: DEMENTIA ALZHEIMER^S TYPE
     Route: 048
     Dates: start: 20111006, end: 20111019
  2. ARICEPT [Suspect]
     Route: 048
     Dates: start: 20111020, end: 201301
  3. JZOLOFT [Concomitant]
     Indication: DEMENTIA ALZHEIMER^S TYPE
     Dosage: UNKNOWN
     Route: 048
     Dates: start: 20110210, end: 201301
  4. SERMION [Concomitant]
     Route: 048
     Dates: end: 201301
  5. BAYASPIRIN [Concomitant]
     Route: 048
     Dates: start: 201204, end: 201301
  6. TAKEPRON [Concomitant]
     Indication: PROPHYLAXIS
     Route: 048
     Dates: start: 201204, end: 201301

REACTIONS (1)
  - Altered state of consciousness [Unknown]
